FAERS Safety Report 8495434-2 (Version None)
Quarter: 2012Q3

REPORT INFORMATION
  Report Type: 
  Country: None (occurrence: None)
  Receive Date: 20120709
  Receipt Date: 20120704
  Transmission Date: 20120928
  Serious: Yes (Other)
  Sender: FDA-Public Use
  Company Number: CA-PFIZER INC-2012106027

PATIENT
  Age: 58 Year
  Sex: Male
  Weight: 81.633 kg

DRUGS (8)
  1. EFFEXOR [Suspect]
     Indication: ANXIETY
  2. ZOPICLONE [Concomitant]
     Indication: SLEEP DISORDER
     Dosage: 7.5 MG,(2 TABS)  EVERY NIGHT
     Dates: start: 20040101
  3. VENLAFAXINE HCL [Suspect]
     Indication: DEPRESSION
     Dosage: 150 MG, 1X/DAY
  4. LORAZEPAM [Concomitant]
     Indication: FEELING OF RELAXATION
     Dosage: 1 MG, EVERY NIGHT
     Dates: start: 20040101
  5. EFFEXOR [Suspect]
     Indication: DEPRESSION
     Dosage: 150 MG, 1X/DAY
     Dates: start: 20040101
  6. VENLAFAXINE HCL [Suspect]
     Indication: ANXIETY
  7. CYCLOBENZAPRINE [Concomitant]
     Indication: BACK INJURY
     Dosage: 10 MG, 1X/DAY
  8. PANTOPRAZOLE [Concomitant]
     Indication: PROPHYLAXIS
     Dosage: 40 MG, 1X/DAY
     Dates: start: 20040101

REACTIONS (5)
  - POVERTY [None]
  - FLAT AFFECT [None]
  - LIBIDO DECREASED [None]
  - ERECTILE DYSFUNCTION [None]
  - BACK INJURY [None]
